FAERS Safety Report 8328862 (Version 2)
Quarter: 2012Q4

REPORT INFORMATION
  Report Type: Report from Study
  Country: US (occurrence: US)
  Receive Date: 20120110
  Receipt Date: 20121119
  Transmission Date: 20130627
  Serious: Yes (Life-Threatening, Hospitalization)
  Sender: FDA-Public Use
  Company Number: US-UCBSA-048528

PATIENT
  Age: 71 Year
  Sex: Male
  Weight: 47.63 kg

DRUGS (41)
  1. CERTOLIZUMAB PEGOL [Suspect]
     Indication: CROHN^S DISEASE
     Dosage: 400 MG
     Route: 058
     Dates: start: 20110222
  2. AMIODARONE [Suspect]
     Indication: ARRHYTHMIA
     Route: 048
  3. SPIRIVA [Concomitant]
     Indication: CHRONIC OBSTRUCTIVE PULMONARY DISEASE
     Dosage: 1 PUFF DAILY
     Route: 055
  4. ALBUTEROL SULFATE [Concomitant]
     Indication: CHRONIC OBSTRUCTIVE PULMONARY DISEASE
     Dosage: 2 PUFFS AS NECESSARY
     Route: 055
  5. PULMICORT [Concomitant]
     Indication: CHRONIC OBSTRUCTIVE PULMONARY DISEASE
     Dosage: 0.25 MG/2ML
     Route: 055
  6. BROVANA [Concomitant]
  7. FLUTICASONE [Concomitant]
     Indication: HYPERSENSITIVITY
     Dosage: 2 SPRAY INHALATION DAILY EACH NOSTRIL
     Route: 055
  8. FLUTICASONE [Concomitant]
     Indication: CHRONIC OBSTRUCTIVE PULMONARY DISEASE
     Dosage: 2 SPRAY INHALATION DAILY EACH NOSTRIL
     Route: 055
  9. ZOSYN [Concomitant]
  10. PRILOSEC [Concomitant]
     Indication: PEPTIC ULCER
     Route: 048
  11. CALCIUM [Concomitant]
     Indication: OSTEOPOROSIS
     Route: 048
  12. MESALAMINE [Concomitant]
     Indication: CROHN^S DISEASE
     Route: 048
     Dates: start: 20080624
  13. MESALAMINE [Concomitant]
     Indication: CROHN^S DISEASE
     Dates: start: 19991203, end: 20040628
  14. CALCIUM CARBONATE [Concomitant]
     Route: 048
  15. POTASSIUM [Concomitant]
     Indication: SUPPLEMENTATION THERAPY
     Route: 048
  16. ASCORBIC ACID [Concomitant]
     Indication: VITAMIN C DEFICIENCY
     Route: 048
  17. ENTOCORT EC [Concomitant]
     Indication: CROHN^S DISEASE
     Route: 048
     Dates: start: 20090121
  18. PREDNISONE [Concomitant]
     Indication: CROHN^S DISEASE
     Route: 048
     Dates: start: 20100214
  19. PREDNISONE [Concomitant]
     Indication: CHRONIC OBSTRUCTIVE PULMONARY DISEASE
     Route: 048
     Dates: start: 20100214
  20. PREDNISONE [Concomitant]
     Indication: CROHN^S DISEASE
     Dates: start: 19991203, end: 20000609
  21. PREDNISONE [Concomitant]
     Indication: CHRONIC OBSTRUCTIVE PULMONARY DISEASE
     Dates: start: 19991203, end: 20000609
  22. MAXZIDE [Concomitant]
     Dosage: 75/50 MG EVERY DAY
     Route: 048
  23. OMEGA-3 FISH OIL [Concomitant]
     Indication: CROHN^S DISEASE
     Route: 048
  24. CITRACAL [Concomitant]
     Indication: CROHN^S DISEASE
     Route: 048
  25. TOPROL [Concomitant]
     Indication: ARRHYTHMIA SUPRAVENTRICULAR
     Dosage: RESUMED THE DRUG LATER
     Route: 048
  26. COMPLETE MULTIVITAMIN [Concomitant]
     Indication: CROHN^S DISEASE
     Dosage: 1 TAB PER ORAL EVERY DAY
     Route: 048
  27. COMPLETE MULTIVITAMIN [Concomitant]
     Indication: MEDICAL DIET
     Dosage: 1 TAB PER ORAL EVERY DAY
     Route: 048
  28. CITRACAL + D [Concomitant]
     Indication: CROHN^S DISEASE
     Dosage: 250/200 MG ORAL DAILY
     Route: 048
  29. CITRACAL + D [Concomitant]
     Indication: OSTEOPOROSIS
     Dosage: 250/200 MG ORAL DAILY
     Route: 048
  30. FIORICET [Concomitant]
     Indication: PAIN
     Route: 048
  31. ADVAIR DISKUS [Concomitant]
     Indication: CHRONIC OBSTRUCTIVE PULMONARY DISEASE
     Dosage: 250/50 MG TWO TIME DAILY
     Route: 055
  32. SOLU-MEDROL [Concomitant]
     Indication: THROMBOCYTOPENIA
  33. DOXAZOSIN [Concomitant]
     Indication: HYPERTENSION
     Route: 048
  34. ASPIRIN [Concomitant]
  35. NITROGLYCERIN [Concomitant]
     Indication: CHEST PAIN
  36. BOOST [Concomitant]
     Indication: CROHN^S DISEASE
  37. TRIAMTERENE HYDROCHLOROTHIAZIDE [Concomitant]
     Dosage: 75-50 MG DAILY
     Route: 048
  38. HZTZ [Concomitant]
     Indication: HYPERTENSION
     Dosage: 75/50 MG
     Route: 048
  39. CLARITIN [Concomitant]
     Indication: HYPERSENSITIVITY
     Route: 048
  40. LOVENOX [Concomitant]
     Indication: THROMBOSIS PROPHYLAXIS
  41. MVI [Concomitant]
     Indication: VITAMIN SUPPLEMENTATION
     Route: 048

REACTIONS (2)
  - Urosepsis [Unknown]
  - Hypothyroidism [Unknown]
